FAERS Safety Report 13360703 (Version 1)
Quarter: 2017Q1

REPORT INFORMATION
  Report Type: Spontaneous
  Country: JP (occurrence: JP)
  Receive Date: 20170322
  Receipt Date: 20170322
  Transmission Date: 20170429
  Serious: Yes (Other)
  Sender: FDA-Public Use
  Company Number: JP-IMPAX LABORATORIES, INC-2017-IPXL-00672

PATIENT
  Age: 49 Year
  Sex: Female

DRUGS (6)
  1. LEUCOVORIN CALCIUM. [Suspect]
     Active Substance: LEUCOVORIN CALCIUM
     Indication: GESTATIONAL TROPHOBLASTIC TUMOUR
     Dosage: 15 MG, EVERY 6 H (4 DOSES, 24 H AFTER FIRST METHOTREXATE DOSE)
     Route: 065
  2. ACTINOMYCIN D [Suspect]
     Active Substance: DACTINOMYCIN
     Indication: GESTATIONAL TROPHOBLASTIC TUMOUR
     Dosage: 0.5 MG, UNK ON DAY 1 AND DAY 2
     Route: 065
  3. ETOPOSIDE. [Suspect]
     Active Substance: ETOPOSIDE
     Indication: GESTATIONAL TROPHOBLASTIC TUMOUR
     Dosage: 100 MG/M2, UNK ON DAY 1 AND DAY 2
     Route: 065
  4. VINCRISTINE [Suspect]
     Active Substance: VINCRISTINE
     Indication: GESTATIONAL TROPHOBLASTIC TUMOUR
     Dosage: 1 MG, UNK ON DAY 8
     Route: 065
  5. METHOTREXATE. [Suspect]
     Active Substance: METHOTREXATE
     Indication: GESTATIONAL TROPHOBLASTIC TUMOUR
     Dosage: 100 MG/M2; THEN 200 MG/M2 OVER 12 H ON DAY 1
     Route: 065
  6. CYCLOPHOSPHAMIDE. [Suspect]
     Active Substance: CYCLOPHOSPHAMIDE
     Indication: GESTATIONAL TROPHOBLASTIC TUMOUR
     Dosage: 600 MG/M2, UNK ON DAY 8
     Route: 065

REACTIONS (5)
  - Uterine abscess [Recovered/Resolved]
  - Renal infarct [Unknown]
  - Staphylococcal infection [Recovered/Resolved]
  - Endocarditis [Recovered/Resolved]
  - Febrile neutropenia [Recovered/Resolved]
